FAERS Safety Report 8401886-6 (Version None)
Quarter: 2012Q2

REPORT INFORMATION
  Report Type: 
  Country: None (occurrence: None)
  Receive Date: 20120601
  Receipt Date: 20110928
  Transmission Date: 20120825
  Serious: No
  Sender: FDA-Public Use
  Company Number: US-ABBOTT-11P-163-0847860-00

PATIENT
  Sex: Female

DRUGS (2)
  1. MARINOL [Suspect]
     Indication: DECREASED APPETITE
     Dates: start: 20110501, end: 20110601
  2. MARINOL [Suspect]
     Dates: start: 20110601

REACTIONS (2)
  - UNEVALUABLE EVENT [None]
  - SOMNOLENCE [None]
